FAERS Safety Report 9549941 (Version 1)
Quarter: 2013Q3

REPORT INFORMATION
  Report Type: Report from Study
  Country: BR (occurrence: BR)
  Receive Date: 20130924
  Receipt Date: 20130924
  Transmission Date: 20140515
  Serious: Yes (Other)
  Sender: FDA-Public Use
  Company Number: ALCN2013BR002729

PATIENT
  Sex: 0

DRUGS (2)
  1. TRAVATAN [Suspect]
     Indication: GLAUCOMA
     Route: 047
     Dates: start: 2007
  2. INSULIN [Concomitant]
     Indication: DIABETES MELLITUS
     Route: 058

REACTIONS (4)
  - Glaucoma [Unknown]
  - Drug ineffective [Unknown]
  - Photophobia [Unknown]
  - Condition aggravated [Unknown]
